FAERS Safety Report 7898847-2 (Version None)
Quarter: 2011Q4

REPORT INFORMATION
  Report Type: 
  Country: None (occurrence: None)
  Receive Date: 20111107
  Receipt Date: 20111025
  Transmission Date: 20120403
  Serious: Yes (Death)
  Sender: FDA-Public Use
  Company Number: US-MYLANLABS-2011S1022450

PATIENT
  Age: 68 Year
  Sex: Male

DRUGS (3)
  1. AMIODARONE HCL [Suspect]
     Route: 065
  2. COLCHICINE [Interacting]
     Dosage: 1.2MG EVERY 2-4H (TOTAL DOSE 11.8MG OVER 17H)
     Route: 048
  3. COLCHICINE [Interacting]
     Indication: ARTHRALGIA
     Dosage: THEN ORAL COLCHICINE 1.2MG EVERY 2-4H (TOTAL DOSE 11.8MG OVER 17H)
     Route: 042

REACTIONS (5)
  - TOXICITY TO VARIOUS AGENTS [None]
  - THROMBOCYTOPENIA [None]
  - RENAL FAILURE ACUTE [None]
  - DRUG INTERACTION [None]
  - CARDIAC ARREST [None]
